FAERS Safety Report 17160580 (Version 1)
Quarter: 2019Q4

REPORT INFORMATION
  Report Type: Spontaneous
  Country: ES (occurrence: ES)
  Receive Date: 20191216
  Receipt Date: 20191216
  Transmission Date: 20200122
  Serious: Yes (Hospitalization, Other)
  Sender: FDA-Public Use
  Company Number: ES-PFIZER INC-2019471329

PATIENT
  Age: 49 Year
  Sex: Male

DRUGS (1)
  1. CHAMPIX [Suspect]
     Active Substance: VARENICLINE TARTRATE
     Dosage: UNK
     Route: 048
     Dates: start: 201910

REACTIONS (5)
  - Infection [Unknown]
  - Nausea [Unknown]
  - Serum ferritin increased [Unknown]
  - Abdominal discomfort [Unknown]
  - Accident [Unknown]

NARRATIVE: CASE EVENT DATE: 2019
